FAERS Safety Report 12411040 (Version 1)
Quarter: 2016Q2

REPORT INFORMATION
  Report Type: Spontaneous
  Country: US (occurrence: None)
  Receive Date: 20160526
  Receipt Date: 20160526
  Transmission Date: 20160815
  Serious: No
  Sender: FDA-Public Use
  Company Number: None

PATIENT
  Age: 63 Year
  Sex: Female

DRUGS (16)
  1. LISNOP/HCTZ [Concomitant]
  2. CLOBETASOL AER 0.05% [Concomitant]
  3. CLOBETASOL [Concomitant]
     Active Substance: CLOBETASOL
  4. ELDEL [Concomitant]
  5. BYSTOLIC [Concomitant]
     Active Substance: NEBIVOLOL HYDROCHLORIDE
  6. HYDROXYZ HCL [Concomitant]
     Active Substance: HYDROXYZINE HYDROCHLORIDE
  7. MUPIROCIN. [Concomitant]
     Active Substance: MUPIROCIN
  8. DOXYCYC MONO [Concomitant]
  9. CEPHALEXIN. [Concomitant]
     Active Substance: CEPHALEXIN
  10. PERMETHRIN CREAM 5% PERRIGO [Concomitant]
     Active Substance: PERMETHRIN
  11. CALOPOTREN [Concomitant]
  12. ALENDRONATE TAB [Concomitant]
  13. HALOBETASOL CREAM [Concomitant]
     Active Substance: HALOBETASOL PROPIONATE
  14. CLOBETASOL CRE 0.05% [Concomitant]
  15. ENBREL [Suspect]
     Active Substance: ETANERCEPT
     Indication: PSORIASIS
     Route: 058
     Dates: start: 20150619, end: 20160419
  16. TACLONEX [Concomitant]
     Active Substance: BETAMETHASONE DIPROPIONATE\CALCIPOTRIENE\CALCIPOTRIENE HYDRATE

REACTIONS (2)
  - Psoriasis [None]
  - Rash pruritic [None]

NARRATIVE: CASE EVENT DATE: 201605
